FAERS Safety Report 16212891 (Version 15)
Quarter: 2022Q1

REPORT INFORMATION
  Report Type: Report from Study
  Country: FR (occurrence: FR)
  Receive Date: 20190418
  Receipt Date: 20220104
  Transmission Date: 20220423
  Serious: Yes (Other)
  Sender: FDA-Public Use
  Company Number: FR-CELGENE-FRA-20190404598

PATIENT
  Age: 81 Year
  Sex: Female
  Weight: 54 kg

DRUGS (21)
  1. ROMIDEPSIN [Suspect]
     Active Substance: ROMIDEPSIN
     Indication: T-cell lymphoma
     Route: 041
     Dates: start: 20160916
  2. ROMIDEPSIN [Suspect]
     Active Substance: ROMIDEPSIN
     Route: 041
     Dates: end: 20161230
  3. CYCLOPHOSPHAMIDE [Suspect]
     Active Substance: CYCLOPHOSPHAMIDE
     Indication: T-cell lymphoma
     Dosage: CHOP
     Route: 065
     Dates: start: 20160916
  4. PREDNISONE [Suspect]
     Active Substance: PREDNISONE
     Indication: T-cell lymphoma
     Dosage: CHOP
     Route: 048
     Dates: start: 20160916
  5. DOXORUBICIN [Suspect]
     Active Substance: DOXORUBICIN
     Indication: T-cell lymphoma
     Dosage: CHOP
     Route: 065
     Dates: start: 20160916
  6. VINCRISTINE [Suspect]
     Active Substance: VINCRISTINE
     Indication: T-cell lymphoma
     Dosage: CHOP
     Route: 065
     Dates: start: 20160916
  7. VALACYCLOVIR [Concomitant]
     Active Substance: VALACYCLOVIR HYDROCHLORIDE
     Indication: Infection prophylaxis
     Route: 065
     Dates: start: 20160921
  8. AMOXICILLIN [Concomitant]
     Active Substance: AMOXICILLIN
     Indication: Infection prophylaxis
     Route: 065
     Dates: start: 20160921
  9. ESOMEPRAZOLE [Concomitant]
     Active Substance: ESOMEPRAZOLE
     Indication: Abdominal pain upper
     Route: 065
     Dates: start: 20160808
  10. NICOPATCH [Concomitant]
     Active Substance: NICOTINE
     Indication: Ex-tobacco user
     Route: 065
     Dates: start: 20160908, end: 20161117
  11. URAPIDIL [Concomitant]
     Active Substance: URAPIDIL
     Indication: Hypertension
     Route: 065
     Dates: start: 20160921
  12. PENTAMIDINE ISETHIONATE [Concomitant]
     Active Substance: PENTAMIDINE ISETHIONATE
     Indication: Infection prophylaxis
     Route: 065
     Dates: start: 20160926
  13. ESOMEPRAZOLE [Concomitant]
     Active Substance: ESOMEPRAZOLE
     Indication: Abdominal pain
     Route: 065
     Dates: start: 20161007
  14. NEFOPAM [Concomitant]
     Active Substance: NEFOPAM
     Indication: Abdominal pain
     Route: 065
     Dates: start: 20160921, end: 201610
  15. CEFTRIAXONE [Concomitant]
     Active Substance: CEFTRIAXONE
     Indication: Inflammation
     Route: 065
     Dates: start: 201609, end: 201609
  16. OFLOXACIN [Concomitant]
     Active Substance: OFLOXACIN
     Indication: Inflammation
     Route: 065
     Dates: start: 201609, end: 201609
  17. SULFAMETHOXAZOLE [Concomitant]
     Active Substance: SULFAMETHOXAZOLE
     Indication: Inflammation
     Route: 065
  18. TRIMETHOPRIM [Concomitant]
     Active Substance: TRIMETHOPRIM
     Indication: Infection prophylaxis
     Route: 065
     Dates: start: 20160921, end: 20160927
  19. FUROSEMIDE [Concomitant]
     Active Substance: FUROSEMIDE
     Indication: Transfusion
     Route: 065
     Dates: start: 20161112, end: 20161112
  20. HEPARIN [Concomitant]
     Active Substance: HEPARIN SODIUM
     Indication: Surgery
     Route: 065
     Dates: start: 20161212, end: 20161217
  21. ACETAMINOPHEN\CODEINE PHOSPHATE [Concomitant]
     Active Substance: ACETAMINOPHEN\CODEINE PHOSPHATE
     Indication: Abdominal pain
     Route: 065
     Dates: start: 20160412, end: 20161207

REACTIONS (1)
  - Myelodysplastic syndrome [Not Recovered/Not Resolved]

NARRATIVE: CASE EVENT DATE: 20190326
